FAERS Safety Report 10405362 (Version 1)
Quarter: 2014Q3

REPORT INFORMATION
  Report Type: Spontaneous
  Country: AU (occurrence: None)
  Receive Date: 20140820
  Receipt Date: 20140820
  Transmission Date: 20150326
  Serious: Yes (Hospitalization)
  Sender: FDA-Public Use
  Company Number: IPC201408-000415

PATIENT
  Age: 77 Year
  Sex: Male

DRUGS (3)
  1. ENALAPRIL (ENALAPRIL) (ENALAPRIL) [Suspect]
     Active Substance: ENALAPRIL
  2. HYDROCHLOROTHIAZIDE (HYDROCHLOROTHIAZIDE) (HYDROCHLOROTHIAZIDE) [Suspect]
     Active Substance: HYDROCHLOROTHIAZIDE
  3. ATORVASTATIN (ATORVASTATIN) (ATORVASTATIN) [Suspect]
     Active Substance: ATORVASTATIN

REACTIONS (5)
  - Angioedema [None]
  - Obstructive airways disorder [None]
  - Speech disorder [None]
  - Hypersensitivity [None]
  - Dyspnoea [None]
